FAERS Safety Report 4459254-8 (Version None)
Quarter: 2004Q3

REPORT INFORMATION
  Report Type: 
  Country: None (occurrence: None)
  Receive Date: 20040922
  Receipt Date: 20040922
  Transmission Date: 20050211
  Serious: Yes (Death)
  Sender: FDA-Public Use
  Company Number: None

PATIENT
  Sex: Female
  Weight: 31 kg

DRUGS (2)
  1. MITOXANTRONE [Suspect]
     Indication: ACUTE MYELOID LEUKAEMIA
     Dosage: 15 DAILY X 4 IV
     Route: 042
     Dates: start: 20040830, end: 20040913
  2. GENTUZAMAB [Concomitant]

REACTIONS (1)
  - CARDIAC FAILURE [None]
